FAERS Safety Report 5077106-X (Version None)
Quarter: 2006Q3

REPORT INFORMATION
  Report Type: 
  Country: None (occurrence: None)
  Receive Date: 20060810
  Receipt Date: 20051212
  Transmission Date: 20061208
  Serious: No
  Sender: FDA-Public Use
  Company Number: US-GLAXOSMITHKLINE-A0585545A

PATIENT
  Age: 54 Year
  Sex: Female

DRUGS (2)
  1. PAROXETINE HCL [Suspect]
     Route: 048
  2. NO CONCURRENT MEDICATION [Concomitant]

REACTIONS (1)
  - HEADACHE [None]
